FAERS Safety Report 4387632-4 (Version None)
Quarter: 2004Q2

REPORT INFORMATION
  Report Type: 
  Country: None (occurrence: None)
  Receive Date: 20040630
  Receipt Date: 20040521
  Transmission Date: 20050107
  Serious: No
  Sender: FDA-Public Use
  Company Number: US-GLAXOSMITHKLINE-A0511756A

PATIENT
  Age: 51 Year
  Sex: Female

DRUGS (6)
  1. ADVAIR HFA [Suspect]
     Dosage: 1PUFF TWICE PER DAY
     Route: 055
     Dates: start: 20040315, end: 20040519
  2. CELEXA [Concomitant]
  3. ORTHO-EST [Concomitant]
  4. PROVERA [Concomitant]
  5. DIURETIC [Concomitant]
  6. BLOOD PRESSURE MEDICATION [Concomitant]
     Route: 048

REACTIONS (1)
  - INSOMNIA [None]
